FAERS Safety Report 17143382 (Version 1)
Quarter: 2019Q4

REPORT INFORMATION
  Report Type: Report from Study
  Country: None (occurrence: US)
  Receive Date: 20191212
  Receipt Date: 20191212
  Transmission Date: 20200122
  Serious: Yes (Hospitalization, Other)
  Sender: FDA-Public Use
  Company Number: US-ABBVIE-19K-163-3188769-00

PATIENT
  Age: 66 Year
  Sex: Male

DRUGS (1)
  1. DUOPA [Suspect]
     Active Substance: CARBIDOPA\LEVODOPA
     Indication: PRODUCT USED FOR UNKNOWN INDICATION
     Route: 050
     Dates: start: 20170125

REACTIONS (8)
  - Pneumothorax [Unknown]
  - Hip fracture [Unknown]
  - Deep brain stimulation [Unknown]
  - Rib fracture [Unknown]
  - Spinal fracture [Unknown]
  - Joint injury [Unknown]
  - Aortic aneurysm [Unknown]
  - Fall [Unknown]

NARRATIVE: CASE EVENT DATE: 20190601
